FAERS Safety Report 5315553-9 (Version None)
Quarter: 2007Q2

REPORT INFORMATION
  Report Type: 
  Country: None (occurrence: None)
  Receive Date: 20070503
  Receipt Date: 20070426
  Transmission Date: 20071010
  Serious: Yes (Hospitalization, Other)
  Sender: FDA-Public Use
  Company Number: 2007UW02841

PATIENT
  Age: 65 Year
  Sex: Female
  Weight: 94 kg

DRUGS (6)
  1. ARIMIDEX [Suspect]
     Indication: BREAST CANCER
     Route: 048
     Dates: start: 20070124
  2. TOPROL-XL [Concomitant]
     Route: 048
  3. NEXIUM [Concomitant]
     Route: 048
  4. XANAX [Concomitant]
  5. LIPITOR [Concomitant]
  6. TEGRETOL [Concomitant]

REACTIONS (6)
  - CONVULSION [None]
  - HOT FLUSH [None]
  - LOSS OF CONSCIOUSNESS [None]
  - MUSCLE SPASMS [None]
  - TINNITUS [None]
  - URINARY TRACT INFECTION [None]
